FAERS Safety Report 4463693-9 (Version None)
Quarter: 2004Q3

REPORT INFORMATION
  Report Type: 
  Country: None (occurrence: None)
  Receive Date: 20040929
  Receipt Date: 20040916
  Transmission Date: 20050211
  Serious: Yes (Hospitalization)
  Sender: FDA-Public Use
  Company Number: 2004234467FR

PATIENT
  Age: 77 Year
  Sex: Female

DRUGS (3)
  1. ALDACTONE [Suspect]
     Dosage: 75 MG, DAILY, ORAL
     Route: 048
     Dates: end: 20040529
  2. INDAPAMIDE [Suspect]
     Dosage: 5 MG, DAILY, ORAL
     Route: 048
     Dates: end: 20040529
  3. FENOFIBRATE [Suspect]
     Dosage: 300 MG, DAILY, ORAL
     Route: 048
     Dates: end: 20040529

REACTIONS (2)
  - HYPONATRAEMIA [None]
  - RHABDOMYOLYSIS [None]
